FAERS Safety Report 6367659-3 (Version None)
Quarter: 2009Q3

REPORT INFORMATION
  Report Type: 
  Country: None (occurrence: None)
  Receive Date: 20090921
  Receipt Date: 20090914
  Transmission Date: 20100115
  Serious: Yes (Hospitalization)
  Sender: FDA-Public Use
  Company Number: CH-ROCHE-656560

PATIENT
  Age: 71 Year
  Sex: Male

DRUGS (10)
  1. RIVOTRIL [Suspect]
     Dosage: DOSAGE REGIMEN: 1 TOTAL
     Route: 040
     Dates: start: 20090627, end: 20090627
  2. MORPHINE [Interacting]
     Indication: DRUG USE FOR UNKNOWN INDICATION
     Dosage: DOSAGE REGIMEN: 2 TOTAL
     Route: 048
     Dates: start: 20090626, end: 20090627
  3. ZYPREXA [Interacting]
     Indication: DRUG USE FOR UNKNOWN INDICATION
     Dosage: DOSAGE REGIMEN: 1 TOTAL
     Route: 048
     Dates: start: 20090625, end: 20090625
  4. TIAPRIDAL [Concomitant]
     Route: 048
  5. CLEXANE [Concomitant]
     Route: 058
  6. AMLODIPINE [Concomitant]
     Route: 048
  7. ORFIRIL [Concomitant]
     Route: 048
  8. PHYSIOTENS [Concomitant]
     Route: 048
  9. BELOC-ZOK [Concomitant]
     Route: 048
  10. DAFALGAN [Concomitant]
     Route: 048

REACTIONS (2)
  - ALTERED STATE OF CONSCIOUSNESS [None]
  - DRUG INTERACTION [None]
